FAERS Safety Report 14037484 (Version 1)
Quarter: 2017Q4

REPORT INFORMATION
  Report Type: Spontaneous
  Country: US (occurrence: US)
  Receive Date: 20171004
  Receipt Date: 20171004
  Transmission Date: 20180321
  Serious: Yes (Other)
  Sender: FDA-Public Use
  Company Number: US-UNICHEM LABORATORIES LIMITED-UCM201704-000093

PATIENT
  Age: 81 Year
  Sex: Female

DRUGS (4)
  1. CLONIDINE HCL [Suspect]
     Active Substance: CLONIDINE HYDROCHLORIDE
     Indication: BLOOD PRESSURE MEASUREMENT
  2. PREDNISONE. [Concomitant]
     Active Substance: PREDNISONE
     Indication: PNEUMONIA
  3. DIURETIC [Concomitant]
     Active Substance: UNSPECIFIED INGREDIENT
     Indication: DRUG WITHDRAWAL SYNDROME
  4. CORTISONE [Concomitant]
     Active Substance: CORTISONE\HYDROCORTISONE
     Indication: PNEUMONIA

REACTIONS (11)
  - Wrong technique in product usage process [Unknown]
  - Dry throat [Unknown]
  - Cough [Unknown]
  - Epistaxis [Unknown]
  - Nasal dryness [Unknown]
  - Sensation of foreign body [Unknown]
  - Chest pain [Unknown]
  - Product taste abnormal [Unknown]
  - Dysphagia [Unknown]
  - Withdrawal hypertension [Unknown]
  - Dry eye [Unknown]
